FAERS Safety Report 8623338-0 (Version None)
Quarter: 2012Q3

REPORT INFORMATION
  Report Type: 
  Country: None (occurrence: None)
  Receive Date: 20120827
  Receipt Date: 20120820
  Transmission Date: 20120928
  Serious: Yes (Hospitalization)
  Sender: FDA-Public Use
  Company Number: CN-SANOFI-AVENTIS-2012SA060259

PATIENT
  Age: 76 Year
  Sex: Male
  Weight: 58 kg

DRUGS (1)
  1. PLAVIX [Suspect]
     Indication: ANTIPLATELET THERAPY
     Route: 048
     Dates: start: 20090915, end: 20091011

REACTIONS (7)
  - ASTHMA [None]
  - CHEST DISCOMFORT [None]
  - GASTROINTESTINAL HAEMORRHAGE [None]
  - WHEEZING [None]
  - FAECES DISCOLOURED [None]
  - SUPRAVENTRICULAR EXTRASYSTOLES [None]
  - DYSPNOEA [None]
